FAERS Safety Report 15759933 (Version 1)
Quarter: 2018Q4

REPORT INFORMATION
  Report Type: Spontaneous
  Country: US (occurrence: US)
  Receive Date: 20181226
  Receipt Date: 20181226
  Transmission Date: 20190205
  Serious: No
  Sender: FDA-Public Use
  Company Number: US-VISTAPHARM, INC.-VER201811-000977

PATIENT
  Age: 41 Year
  Sex: Female

DRUGS (3)
  1. IBUPROFEN. [Concomitant]
     Active Substance: IBUPROFEN
     Indication: HEADACHE
     Dosage: UNKNOWN
  2. METHADONE HYDROCHLORIDE ORAL CONCENTRATE USP CII 10 MG/ML [Suspect]
     Active Substance: METHADONE HYDROCHLORIDE
     Dosage: 95 MG
     Route: 048
  3. METHADONE HYDROCHLORIDE ORAL CONCENTRATE USP CII 10 MG/ML [Suspect]
     Active Substance: METHADONE HYDROCHLORIDE
     Indication: DRUG DEPENDENCE
     Dosage: 95 MG
     Route: 048

REACTIONS (9)
  - Abdominal pain upper [Unknown]
  - Hyperhidrosis [Unknown]
  - Tremor [Unknown]
  - Chest discomfort [Unknown]
  - Chills [Unknown]
  - Intentional overdose [Unknown]
  - Anxiety [Unknown]
  - Somnolence [Unknown]
  - Withdrawal syndrome [Unknown]

NARRATIVE: CASE EVENT DATE: 20181124
